FAERS Safety Report 8533803-2 (Version None)
Quarter: 2012Q3

REPORT INFORMATION
  Report Type: 
  Country: None (occurrence: None)
  Receive Date: 20120711
  Receipt Date: 20110623
  Transmission Date: 20120928
  Serious: No
  Sender: FDA-Public Use
  Company Number: 11-013

PATIENT
  Age: 50 Year

DRUGS (1)
  1. ALLERGENIC EXTRACT OF VARIOUS ALLERGENS [Suspect]
     Indication: RHINITIS ALLERGIC
     Dosage: 0.50 CC OF 1:400 V/V

REACTIONS (1)
  - INJECTION SITE URTICARIA [None]
